FAERS Safety Report 7982838-7 (Version None)
Quarter: 2011Q4

REPORT INFORMATION
  Report Type: 
  Country: None (occurrence: None)
  Receive Date: 20111215
  Receipt Date: 20111206
  Transmission Date: 20120403
  Serious: No
  Sender: FDA-Public Use
  Company Number: US-BAYER-2011-106043

PATIENT
  Age: 41 Year
  Sex: Female
  Weight: 62.132 kg

DRUGS (1)
  1. MIRENA [Suspect]
     Indication: MENORRHAGIA
     Dosage: 20 ?G, CONT
     Route: 015
     Dates: start: 20111006, end: 20111101

REACTIONS (2)
  - DEVICE EXPULSION [None]
  - MENSTRUAL DISORDER [None]
